FAERS Safety Report 10210686 (Version 5)
Quarter: 2014Q4

REPORT INFORMATION
  Report Type: Spontaneous
  Country: US (occurrence: US)
  Receive Date: 20140602
  Receipt Date: 20141208
  Transmission Date: 20150528
  Serious: No
  Sender: FDA-Public Use
  Company Number: US-009507513-1405USA010281

PATIENT
  Age: 17 Year
  Sex: Female
  Weight: 107.48 kg

DRUGS (2)
  1. NEXPLANON [Suspect]
     Active Substance: ETONOGESTREL
     Dosage: UNK
     Route: 059
     Dates: start: 201405, end: 201410
  2. NEXPLANON [Suspect]
     Active Substance: ETONOGESTREL
     Dosage: UNK
     Route: 059
     Dates: start: 20121107, end: 20140519

REACTIONS (15)
  - Discomfort [Unknown]
  - Implant site scar [Unknown]
  - Device deployment issue [Recovered/Resolved]
  - Device breakage [Recovered/Resolved]
  - Pain [Unknown]
  - Implant site erythema [Unknown]
  - Device difficult to use [Recovered/Resolved]
  - Capillary fragility [Unknown]
  - Implant site erythema [Recovered/Resolved]
  - Implant site swelling [Unknown]
  - Device difficult to use [Recovered/Resolved]
  - Implant site pain [Unknown]
  - Weight increased [Unknown]
  - Discomfort [Not Recovered/Not Resolved]
  - Medical device complication [Recovered/Resolved]

NARRATIVE: CASE EVENT DATE: 20121107
